FAERS Safety Report 8853351 (Version 1)
Quarter: 2012Q4

REPORT INFORMATION
  Report Type: 
  Country: RO (occurrence: RO)
  Receive Date: 20121022
  Receipt Date: 20121022
  Transmission Date: 20130627
  Serious: Yes (Death, Other)
  Sender: FDA-Public Use
  Company Number: RO-ROCHE-1142910

PATIENT
  Age: 55 Year
  Sex: Female

DRUGS (5)
  1. TRASTUZUMAB [Suspect]
     Indication: BREAST CANCER METASTATIC
     Route: 065
     Dates: start: 201011, end: 201106
  2. TRASTUZUMAB [Suspect]
     Route: 065
     Dates: start: 200808
  3. TRASTUZUMAB [Suspect]
     Route: 065
     Dates: start: 200906
  4. DOCETAXEL [Concomitant]
     Dosage: 3 CYCLES
     Route: 065
     Dates: start: 200808
  5. PACLITAXEL [Concomitant]

REACTIONS (4)
  - Hepatobiliary disease [Fatal]
  - Hepatobiliary disease [Fatal]
  - Back pain [Recovered/Resolved]
  - Metastases to liver [Unknown]
